FAERS Safety Report 18165071 (Version 1)
Quarter: 2020Q3

REPORT INFORMATION
  Report Type: Report from Study
  Country: None (occurrence: US)
  Receive Date: 20200819
  Receipt Date: 20200819
  Transmission Date: 20201103
  Serious: Yes (Other)
  Sender: FDA-Public Use
  Company Number: US-ABBVIE-20K-163-3529280-00

PATIENT
  Sex: Female

DRUGS (2)
  1. HUMIRA [Suspect]
     Active Substance: ADALIMUMAB
     Indication: CROHN^S DISEASE
     Dosage: DAY 1
     Route: 058
     Dates: start: 20200717, end: 20200717
  2. HUMIRA [Suspect]
     Active Substance: ADALIMUMAB
     Dosage: DAY 15
     Route: 058
     Dates: start: 20200731, end: 20200731

REACTIONS (11)
  - Nausea [Unknown]
  - Diarrhoea [Not Recovered/Not Resolved]
  - Retching [Unknown]
  - Haematochezia [Recovered/Resolved]
  - Vomiting [Unknown]
  - Faeces discoloured [Unknown]
  - Loss of consciousness [Unknown]
  - Chronic obstructive pulmonary disease [Unknown]
  - Urticaria [Recovered/Resolved]
  - Abdominal pain upper [Not Recovered/Not Resolved]
  - Pruritus [Recovered/Resolved]

NARRATIVE: CASE EVENT DATE: 2020
